FAERS Safety Report 25482991 (Version 3)
Quarter: 2025Q3

REPORT INFORMATION
  Report Type: Spontaneous
  Country: JP (occurrence: JP)
  Receive Date: 20250626
  Receipt Date: 20250714
  Transmission Date: 20251020
  Serious: Yes (Death, Hospitalization, Other)
  Sender: ABBVIE
  Company Number: JP-ABBVIE-6345881

PATIENT
  Age: 76 Year
  Sex: Female
  Weight: 50 kg

DRUGS (4)
  1. RINVOQ [Suspect]
     Active Substance: UPADACITINIB
     Indication: Rheumatoid arthritis
     Route: 048
     Dates: start: 20220714, end: 20250507
  2. RINVOQ [Suspect]
     Active Substance: UPADACITINIB
     Indication: Rheumatoid arthritis
     Route: 048
     Dates: start: 2025
  3. METHOTREXATE [Concomitant]
     Active Substance: METHOTREXATE
     Indication: Rheumatoid arthritis
     Route: 048
     Dates: end: 20221015
  4. ASPIRIN [Concomitant]
     Active Substance: ASPIRIN
     Indication: Product used for unknown indication

REACTIONS (2)
  - Cerebral haemorrhage [Fatal]
  - Muscular weakness [Unknown]

NARRATIVE: CASE EVENT DATE: 20250101
